FAERS Safety Report 12234045 (Version 4)
Quarter: 2024Q1

REPORT INFORMATION
  Report Type: Spontaneous
  Country: FR (occurrence: None)
  Receive Date: 20160404
  Receipt Date: 20240311
  Transmission Date: 20240410
  Serious: Yes (Death, Hospitalization, Other)
  Sender: FDA-Public Use
  Company Number: 2016SE32447

PATIENT
  Age: 23608 Day
  Sex: Male

DRUGS (15)
  1. ESOMEPRAZOLE [Suspect]
     Active Substance: ESOMEPRAZOLE
     Indication: Product used for unknown indication
     Route: 048
     Dates: end: 20160313
  2. KETOCONAZOLE [Suspect]
     Active Substance: KETOCONAZOLE
     Indication: Pituitary-dependent Cushing^s syndrome
     Route: 048
     Dates: start: 20160305, end: 20160313
  3. TAHOR [Suspect]
     Active Substance: ATORVASTATIN CALCIUM
     Indication: Dyslipidaemia
     Route: 048
     Dates: start: 20160309, end: 20160314
  4. ACETAMINOPHEN\ASPIRIN\CODEINE\HYDROXYZINE\PENTOBARBITAL [Suspect]
     Active Substance: ACETAMINOPHEN\ASPIRIN\CODEINE\HYDROXYZINE\PENTOBARBITAL
     Indication: Product used for unknown indication
     Dosage: 2 INTAKES BETWEEN 09-MAR-2016 AND 13-MAR-2016
     Route: 048
     Dates: start: 20160308
  5. LOVENOX [Concomitant]
     Active Substance: ENOXAPARIN SODIUM
     Indication: Deep vein thrombosis
     Route: 058
  6. CILASTATIN SODIUM\IMIPENEM [Concomitant]
     Active Substance: CILASTATIN SODIUM\IMIPENEM
     Indication: Antibiotic therapy
     Route: 042
     Dates: start: 20160227
  7. ALDACTONE [Concomitant]
     Active Substance: SPIRONOLACTONE
  8. PREVISCAN [Concomitant]
     Indication: Product used for unknown indication
  9. ALPRAZOLAM [Concomitant]
     Active Substance: ALPRAZOLAM
     Indication: Product used for unknown indication
  10. BACTRIM [Concomitant]
     Active Substance: SULFAMETHOXAZOLE\TRIMETHOPRIM
     Indication: Product used for unknown indication
  11. OXYCONTIN [Concomitant]
     Active Substance: OXYCODONE HYDROCHLORIDE
     Indication: Product used for unknown indication
  12. LANTUS [Concomitant]
     Active Substance: INSULIN GLARGINE
     Indication: Product used for unknown indication
  13. HYDROCORTISONE [Concomitant]
     Active Substance: HYDROCORTISONE
     Indication: Adjuvant therapy
  14. AMIKACIN [Concomitant]
     Active Substance: AMIKACIN
     Indication: Adjuvant therapy
  15. SPIRAMYCIN [Concomitant]
     Active Substance: SPIRAMYCIN
     Indication: Adjuvant therapy

REACTIONS (10)
  - Cardio-respiratory arrest [Fatal]
  - Dermatitis [Recovering/Resolving]
  - Aortic aneurysm rupture [Unknown]
  - Pulmonary embolism [Unknown]
  - Post procedural sepsis [Unknown]
  - Enterobacter infection [Unknown]
  - Acute respiratory distress syndrome [Unknown]
  - Localised infection [Unknown]
  - Dermatitis exfoliative generalised [Recovering/Resolving]
  - Hypogonadism [Unknown]

NARRATIVE: CASE EVENT DATE: 20160313
